FAERS Safety Report 23633379 (Version 1)
Quarter: 2024Q1

REPORT INFORMATION
  Report Type: Spontaneous
  Country: HU (occurrence: HU)
  Receive Date: 20240314
  Receipt Date: 20240314
  Transmission Date: 20240409
  Serious: Yes (Death, Other)
  Sender: FDA-Public Use
  Company Number: HU-002147023-NVSC2024HU050799

PATIENT

DRUGS (2)
  1. RUXOLITINIB [Suspect]
     Active Substance: RUXOLITINIB
     Indication: Myeloproliferative neoplasm
     Dosage: 5 MG, BID
     Route: 065
     Dates: start: 201705
  2. RUXOLITINIB [Suspect]
     Active Substance: RUXOLITINIB
     Dosage: 15 MG, BID
     Route: 065
     Dates: start: 201805

REACTIONS (4)
  - Condition aggravated [Unknown]
  - Death [Fatal]
  - Metastases to bone [Unknown]
  - Invasive breast carcinoma [Unknown]

NARRATIVE: CASE EVENT DATE: 20190701
